FAERS Safety Report 17129421 (Version 2)
Quarter: 2020Q1

REPORT INFORMATION
  Report Type: Spontaneous
  Country: US (occurrence: US)
  Receive Date: 20191209
  Receipt Date: 20200108
  Transmission Date: 20200409
  Serious: Yes (Other)
  Sender: FDA-Public Use
  Company Number: US-PFIZER INC-2019530642

PATIENT
  Age: 36 Year
  Sex: Female

DRUGS (4)
  1. CIMZIA [Concomitant]
     Active Substance: CERTOLIZUMAB PEGOL
     Indication: CROHN^S DISEASE
  2. XELJANZ XR [Suspect]
     Active Substance: TOFACITINIB CITRATE
     Indication: RHEUMATOID ARTHRITIS
     Dosage: 11 MG, DAILY
     Route: 048
     Dates: start: 201907
  3. XELJANZ XR [Suspect]
     Active Substance: TOFACITINIB CITRATE
     Indication: CROHN^S DISEASE
  4. CIMZIA [Concomitant]
     Active Substance: CERTOLIZUMAB PEGOL
     Indication: RHEUMATOID ARTHRITIS

REACTIONS (4)
  - Pain in jaw [Unknown]
  - Crohn^s disease [Unknown]
  - Swelling [Unknown]
  - Drug ineffective [Unknown]

NARRATIVE: CASE EVENT DATE: 2019
